FAERS Safety Report 25950767 (Version 1)
Quarter: 2025Q4

REPORT INFORMATION
  Report Type: Spontaneous
  Country: US (occurrence: US)
  Receive Date: 20251023
  Receipt Date: 20251023
  Transmission Date: 20260117
  Serious: No
  Sender: BAUSCH AND LOMB
  Company Number: US-BAUSCHBL-2025BNL030501

PATIENT
  Age: 32 Year
  Sex: Male

DRUGS (2)
  1. LUMIFY [Suspect]
     Active Substance: BRIMONIDINE TARTRATE
     Indication: Eye irritation
     Dosage: USING THIS BOTTLE ABOUT TWO WEEKS AGO
     Route: 047
  2. LUMIFY [Suspect]
     Active Substance: BRIMONIDINE TARTRATE
     Dosage: USING FOR ABOUT FIVE YEARS NOW.
     Route: 047

REACTIONS (5)
  - Periorbital irritation [Unknown]
  - Erythema [Unknown]
  - Periorbital swelling [Unknown]
  - Skin exfoliation [Unknown]
  - Product quality issue [Unknown]

NARRATIVE: CASE EVENT DATE: 20251001
